FAERS Safety Report 10724144 (Version 1)
Quarter: 2015Q1

REPORT INFORMATION
  Report Type: Spontaneous
  Country: US (occurrence: None)
  Receive Date: 20150116
  Receipt Date: 20150116
  Transmission Date: 20150721
  Serious: Yes (Other)
  Sender: FDA-Public Use
  Company Number: None

PATIENT
  Age: 59 Year
  Sex: Female
  Weight: 89.36 kg

DRUGS (2)
  1. LANTUS SOLOSTAR [Suspect]
     Active Substance: INSULIN GLARGINE
     Indication: TYPE 2 DIABETES MELLITUS
     Dosage: 10 UNITS  AT BEDTIME SUBCUTANEOUSLY
     Route: 058
     Dates: start: 20140901, end: 20141008
  2. LANTUS SOLOSTAR [Suspect]
     Active Substance: INSULIN GLARGINE
     Indication: TYPE 2 DIABETES MELLITUS
     Dosage: 10 UNITS AT BEDTIME SUBCUTANEOUSLY
     Dates: start: 20141009, end: 20150104

REACTIONS (6)
  - Palpitations [None]
  - Glycosylated haemoglobin increased [None]
  - Blood glucose increased [None]
  - Mood swings [None]
  - Drug ineffective [None]
  - Fatigue [None]

NARRATIVE: CASE EVENT DATE: 20141009
